FAERS Safety Report 18734918 (Version 1)
Quarter: 2021Q1

REPORT INFORMATION
  Report Type: Report from Study
  Country: ES (occurrence: ES)
  Receive Date: 20210113
  Receipt Date: 20210113
  Transmission Date: 20210419
  Serious: Yes (Hospitalization)
  Sender: FDA-Public Use
  Company Number: ES-TEVA-2021-ES-1867130

PATIENT
  Age: 16 Year
  Sex: Male

DRUGS (1)
  1. ETOPOSIDO (518A) [Suspect]
     Active Substance: ETOPOSIDE
     Route: 065
     Dates: start: 20200828

REACTIONS (3)
  - Dermatitis exfoliative generalised [Recovered/Resolved]
  - Vomiting [Recovered/Resolved]
  - Pallor [Recovered/Resolved]

NARRATIVE: CASE EVENT DATE: 20200828
